FAERS Safety Report 8992999 (Version 6)
Quarter: 2013Q2

REPORT INFORMATION
  Report Type: Spontaneous
  Country: BR (occurrence: BR)
  Receive Date: 20130102
  Receipt Date: 20130408
  Transmission Date: 20140414
  Serious: Yes (Hospitalization, Other)
  Sender: FDA-Public Use
  Company Number: PHHY2012BR121345

PATIENT
  Age: 14 Year
  Sex: Female
  Weight: 63 kg

DRUGS (7)
  1. EXJADE [Suspect]
     Indication: SICKLE CELL ANAEMIA
     Dosage: 8 DF(250MG), DAILY
     Route: 048
  2. EXJADE [Suspect]
     Indication: SERUM FERRITIN INCREASED
  3. FOLIC ACID [Concomitant]
     Dosage: UNK UKN, UNK
  4. B COMPLEX [Concomitant]
     Dosage: UNK UKN, UNK
  5. AAS [Concomitant]
     Indication: BLOOD DISORDER
     Dosage: 50 MG, DAILY
     Route: 048
     Dates: start: 2006
  6. AAS [Concomitant]
     Dosage: 2 DF(100MG), DAILY
     Route: 048
     Dates: start: 2006
  7. BLOOD TRANSFUSION, AUXILIARY PRODUCTS [Concomitant]

REACTIONS (5)
  - Cerebrovascular accident [Recovered/Resolved]
  - Fatigue [Not Recovered/Not Resolved]
  - Headache [Not Recovered/Not Resolved]
  - Serum ferritin increased [Not Recovered/Not Resolved]
  - Local swelling [Not Recovered/Not Resolved]
